FAERS Safety Report 7906006-X (Version None)
Quarter: 2011Q4

REPORT INFORMATION
  Report Type: 
  Country: None (occurrence: None)
  Receive Date: 20111110
  Receipt Date: 20111104
  Transmission Date: 20120403
  Serious: No
  Sender: FDA-Public Use
  Company Number: US-B.I. PHARMACEUTICALS,INC./RIDGEFIELD-2011-BP-25715BP

PATIENT
  Sex: Female

DRUGS (3)
  1. SPIRIVA [Suspect]
  2. ADVAIR DISKUS 100/50 [Concomitant]
  3. SINGULAIR [Concomitant]

REACTIONS (1)
  - DRUG INEFFECTIVE [None]
